APPROVED DRUG PRODUCT: IBUPROFEN AND FAMOTIDINE
Active Ingredient: FAMOTIDINE; IBUPROFEN
Strength: 26.6MG;800MG
Dosage Form/Route: TABLET;ORAL
Application: A211278 | Product #001
Applicant: TEVA PHARMACEUTICALS USA
Approved: Oct 29, 2021 | RLD: No | RS: No | Type: DISCN